FAERS Safety Report 5347302-2 (Version None)
Quarter: 2007Q2

REPORT INFORMATION
  Report Type: 
  Country: None (occurrence: None)
  Receive Date: 20070606
  Receipt Date: 20070529
  Transmission Date: 20071010
  Serious: Yes (Hospitalization, Other)
  Sender: FDA-Public Use
  Company Number: PHEH2007US04818

PATIENT
  Sex: Female
  Weight: 60.317 kg

DRUGS (12)
  1. ZELNORM [Suspect]
     Indication: IRRITABLE BOWEL SYNDROME
     Dosage: 6 MG, BID
     Route: 048
     Dates: start: 20040817, end: 20070410
  2. LEXAPRO [Concomitant]
     Indication: DEPRESSION
  3. BELLERGAL [Concomitant]
  4. CRESTOR [Concomitant]
  5. LEVOXYL [Concomitant]
  6. FEMARA [Concomitant]
  7. TOPROL-XL [Concomitant]
  8. AVALIDE [Concomitant]
  9. GABAPENTIN [Concomitant]
  10. PRILOSEC [Concomitant]
  11. POTASSIUM CHLORIDE [Concomitant]
  12. CHEMOTHERAPEUTICS NOS [Concomitant]

REACTIONS (7)
  - BREAST CANCER [None]
  - CHEMOTHERAPY [None]
  - CHOLECYSTECTOMY [None]
  - DYSPNOEA [None]
  - MALIGNANT BREAST LUMP REMOVAL [None]
  - RADIOTHERAPY [None]
  - SEPSIS [None]
